FAERS Safety Report 5518591-6 (Version None)
Quarter: 2007Q4

REPORT INFORMATION
  Report Type: 
  Country: None (occurrence: None)
  Receive Date: 20071115
  Receipt Date: 20071103
  Transmission Date: 20080405
  Serious: Yes (Hospitalization, Other)
  Sender: FDA-Public Use
  Company Number: US-PFIZER INC-2007094955

PATIENT
  Sex: Male

DRUGS (14)
  1. CHANTIX [Suspect]
     Indication: SMOKING CESSATION THERAPY
  2. DYAZIDE [Concomitant]
  3. COMPAZINE [Concomitant]
  4. REGLAN [Concomitant]
  5. PROTONIX [Concomitant]
  6. ZOLOFT [Concomitant]
  7. LYRICA [Concomitant]
  8. AMLODIPINE BESYLATE/VALSARTAN [Concomitant]
  9. OMACOR [Concomitant]
  10. ROXICODONE [Concomitant]
  11. LANTUS [Concomitant]
  12. LACTULOSE [Concomitant]
  13. NITROGLYCERIN [Concomitant]
  14. REGULAR INSULIN [Concomitant]
     Indication: BLOOD GLUCOSE INCREASED

REACTIONS (9)
  - BLOOD ALCOHOL [None]
  - BREATH ODOUR [None]
  - DYSPEPSIA [None]
  - HAEMATEMESIS [None]
  - HYPERCHLORHYDRIA [None]
  - ILL-DEFINED DISORDER [None]
  - NAUSEA [None]
  - VARICOSE VEIN RUPTURED [None]
  - VOMITING [None]
